FAERS Safety Report 5346072-1 (Version None)
Quarter: 2007Q2

REPORT INFORMATION
  Report Type: 
  Country: None (occurrence: None)
  Receive Date: 20070605
  Receipt Date: 20070531
  Transmission Date: 20071010
  Serious: Yes (Death, Life-Threatening)
  Sender: FDA-Public Use
  Company Number: FR-GENENTECH-242320

PATIENT
  Sex: Female

DRUGS (4)
  1. RITUXIMAB [Suspect]
     Indication: BURKITT'S LYMPHOMA
     Dosage: 375 MG/M2, QD
     Route: 042
     Dates: start: 20070515
  2. CYCLOPHOSPHAMIDE [Suspect]
     Indication: BURKITT'S LYMPHOMA
     Dosage: 1000 MG/M2, QD
     Route: 042
     Dates: start: 20070516
  3. VINCRISTINE [Suspect]
     Indication: BURKITT'S LYMPHOMA
     Dosage: 2 MG, QD
     Route: 042
     Dates: start: 20070515
  4. DOXORUBICIN HCL [Suspect]
     Indication: BURKITT'S LYMPHOMA
     Dosage: 60 UNK, UNK
     Route: 042
     Dates: start: 20070516

REACTIONS (2)
  - ACUTE CORONARY SYNDROME [None]
  - CARDIAC FAILURE [None]
